FAERS Safety Report 9260535 (Version 1)
Quarter: 2013Q2

REPORT INFORMATION
  Report Type: Report from Study
  Country: CO (occurrence: CO)
  Receive Date: 20130429
  Receipt Date: 20130429
  Transmission Date: 20140414
  Serious: Yes (Hospitalization)
  Sender: FDA-Public Use
  Company Number: CO-SANOFI-AVENTIS-2013SA043010

PATIENT
  Age: 55 Year
  Sex: Male

DRUGS (4)
  1. INSULIN GLARGINE [Suspect]
     Indication: DIABETES MELLITUS
     Route: 058
     Dates: start: 2008
  2. METOPROLOL [Concomitant]
     Indication: HYPERTENSION
     Route: 048
  3. ENALAPRIL [Concomitant]
     Indication: HYPERTENSION
     Route: 048
  4. LOVASTATIN [Concomitant]
     Indication: CORONARY ARTERY DISEASE
     Route: 048

REACTIONS (1)
  - Skin infection [Not Recovered/Not Resolved]
